FAERS Safety Report 4710601-9 (Version None)
Quarter: 2005Q3

REPORT INFORMATION
  Report Type: 
  Country: None (occurrence: None)
  Receive Date: 20050707
  Receipt Date: 20050622
  Transmission Date: 20060218
  Serious: Yes (Other)
  Sender: FDA-Public Use
  Company Number: 215335

PATIENT
  Age: 45 Year
  Sex: Female

DRUGS (2)
  1. HERCEPTIN [Suspect]
     Indication: BREAST CANCER
     Dosage: 100 MG, 1/WEEK, IV DRIP
     Route: 041
     Dates: start: 20050427
  2. TAXOL [Suspect]
     Dosage: 60 MG, 1/WEEK, INTRAVENOUS
     Route: 042
     Dates: start: 20050427

REACTIONS (8)
  - BREAST CANCER RECURRENT [None]
  - DEPRESSED LEVEL OF CONSCIOUSNESS [None]
  - FALL [None]
  - FOOT FRACTURE [None]
  - GAIT DISTURBANCE [None]
  - METASTASES TO BONE [None]
  - METASTASES TO SKIN [None]
  - WHITE BLOOD CELL COUNT DECREASED [None]
